FAERS Safety Report 10168729 (Version 1)
Quarter: 2014Q2

REPORT INFORMATION
  Report Type: Spontaneous
  Country: CN (occurrence: None)
  Receive Date: 20140509
  Receipt Date: 20140509
  Transmission Date: 20141212
  Serious: Yes (Other)
  Sender: FDA-Public Use
  Company Number: 7290266

PATIENT
  Age: 30 Year
  Sex: Female

DRUGS (1)
  1. EUTHYROX [Suspect]
     Indication: HYPOTHYROIDISM
     Route: 048

REACTIONS (6)
  - Gestational diabetes [None]
  - Vulvovaginal mycotic infection [None]
  - Live birth [None]
  - Maternal exposure during pregnancy [None]
  - Caesarean section [None]
  - Foetal distress syndrome [None]
